FAERS Safety Report 7702431-0 (Version None)
Quarter: 2011Q3

REPORT INFORMATION
  Report Type: 
  Country: None (occurrence: None)
  Receive Date: 20110822
  Receipt Date: 20110819
  Transmission Date: 20111222
  Serious: Yes (Hospitalization, Other)
  Sender: FDA-Public Use
  Company Number: US-BRISTOL-MYERS SQUIBB COMPANY-15727506

PATIENT
  Age: 75 Year
  Sex: Male
  Weight: 81 kg

DRUGS (2)
  1. LEUKINE [Suspect]
     Indication: MALIGNANT MELANOMA
     Dosage: LAST DOSE:25APR2011 250MCG/D SQ CYCLE:21D INDUCTION:CYCLE1-4 COURSES:2
     Route: 058
     Dates: start: 20110325
  2. IPILIMUMAB [Suspect]
     Indication: MALIGNANT MELANOMA
     Dosage: LAST DOSE:15APR2011 10MG/KG IV CYCLE:21D INDUCTION:CYCLE1-4 COURSES:2
     Route: 042
     Dates: start: 20110325

REACTIONS (7)
  - DEHYDRATION [None]
  - HYPOKALAEMIA [None]
  - ATRIAL FIBRILLATION [None]
  - OEDEMA PERIPHERAL [None]
  - COLITIS [None]
  - DIARRHOEA [None]
  - STOMATITIS [None]
